FAERS Safety Report 9713589 (Version 1)
Quarter: 2013Q4

REPORT INFORMATION
  Report Type: Spontaneous
  Country: CL (occurrence: CL)
  Receive Date: 20131126
  Receipt Date: 20131126
  Transmission Date: 20140711
  Serious: Yes (Hospitalization)
  Sender: FDA-Public Use
  Company Number: CL-JNJFOC-20131111899

PATIENT
  Sex: Female
  Weight: 69 kg

DRUGS (3)
  1. REMICADE [Suspect]
     Indication: ANKYLOSING SPONDYLITIS
     Route: 042
     Dates: start: 20121126, end: 201307
  2. PARACETAMOL [Concomitant]
     Route: 065
  3. KETOPROFEN [Concomitant]
     Route: 065

REACTIONS (1)
  - Rhinitis [Recovered/Resolved]
